FAERS Safety Report 16638524 (Version 1)
Quarter: 2019Q3

REPORT INFORMATION
  Report Type: Spontaneous
  Country: FR (occurrence: FR)
  Receive Date: 20190726
  Receipt Date: 20190726
  Transmission Date: 20191004
  Serious: Yes (Hospitalization)
  Sender: FDA-Public Use
  Company Number: FR-PURDUE-GBR-2019-0068553

PATIENT
  Age: 27 Year
  Sex: Male

DRUGS (8)
  1. OXYNORM [Suspect]
     Active Substance: OXYCODONE HYDROCHLORIDE
     Indication: PAIN
     Dosage: 10 MG, Q4H, SI BESOIN
     Route: 048
     Dates: start: 20190608
  2. ALPRAZOLAM MYLAN [Suspect]
     Active Substance: ALPRAZOLAM
     Indication: PRODUCT USED FOR UNKNOWN INDICATION
     Dosage: 0.75 MG, DAILY (MATIN, MIDI ET SOIR)
     Route: 048
     Dates: start: 20190608
  3. DOXYCYCLINE SANDOZ                 /00055701/ [Suspect]
     Active Substance: DOXYCYCLINE
     Indication: BRUCELLOSIS
     Dosage: 200 MG, DAILY, LE MATIN
     Route: 048
     Dates: start: 20190614
  4. LOVENOX [Concomitant]
     Active Substance: ENOXAPARIN SODIUM
     Route: 058
  5. RIFADINE                           /00146901/ [Suspect]
     Active Substance: RIFAMPIN
     Indication: BRUCELLOSIS
     Dosage: 900 MG, DAILY (LE MATIN)
     Route: 042
     Dates: start: 20190615
  6. OXYCODONE [Suspect]
     Active Substance: OXYCODONE
     Indication: PAIN
     Dosage: 60 MG, DAILY, LE MATIN ET LE SOIR
     Route: 048
     Dates: start: 20190608
  7. BACTRIM [Suspect]
     Active Substance: SULFAMETHOXAZOLE\TRIMETHOPRIM
     Indication: BRUCELLOSIS
     Dosage: 2 DF, DAILY (1 CP LE MATIN 1 CP LE SOIR)
     Route: 048
     Dates: start: 20190615, end: 20190627
  8. LEDERFOLINE [Concomitant]
     Active Substance: LEUCOVORIN CALCIUM
     Route: 048

REACTIONS (3)
  - Condition aggravated [Not Recovered/Not Resolved]
  - Leukopenia [Not Recovered/Not Resolved]
  - Neutropenia [Not Recovered/Not Resolved]

NARRATIVE: CASE EVENT DATE: 20190609
